FAERS Safety Report 7413800-0 (Version None)
Quarter: 2011Q2

REPORT INFORMATION
  Report Type: 
  Country: None (occurrence: None)
  Receive Date: 20110413
  Receipt Date: 20110408
  Transmission Date: 20111010
  Serious: Yes (Other)
  Sender: FDA-Public Use
  Company Number: GB-MERCK-1103GBR00117

PATIENT
  Age: 51 Year
  Sex: Female
  Weight: 109 kg

DRUGS (18)
  1. DOXAZOSIN MESYLATE [Concomitant]
     Route: 065
     Dates: start: 20110128
  2. METFORMIN [Concomitant]
     Route: 065
     Dates: start: 20101026, end: 20110121
  3. ATORVASTATIN [Concomitant]
     Route: 065
     Dates: start: 20101026, end: 20101221
  4. GLICLAZIDE [Concomitant]
     Route: 065
     Dates: start: 20101026, end: 20101221
  5. METFORMIN [Concomitant]
     Route: 065
     Dates: start: 20110128
  6. FLOXACILLIN [Concomitant]
     Route: 065
     Dates: start: 20110114, end: 20110119
  7. LIDOCAINE [Concomitant]
     Route: 065
     Dates: start: 20110107, end: 20110206
  8. CALCIUM CARBONATE [Concomitant]
     Route: 065
     Dates: start: 20110211
  9. GLICLAZIDE [Concomitant]
     Route: 065
     Dates: start: 20110128
  10. DOXAZOSIN MESYLATE [Concomitant]
     Route: 065
     Dates: start: 20101026, end: 20110121
  11. CODEINE PHOSPHATE [Concomitant]
     Route: 065
     Dates: start: 20110204, end: 20110218
  12. AZELASTINE HYDROCHLORIDE [Concomitant]
     Route: 065
     Dates: start: 20110107, end: 20110112
  13. AMLODIPINE [Concomitant]
     Route: 065
     Dates: start: 20110128
  14. ATORVASTATIN [Concomitant]
     Route: 065
     Dates: start: 20110128
  15. DEXAMETHASONE AND FRAMYCETIN SULFATE AND GRAMICIDIN [Concomitant]
     Route: 065
     Dates: start: 20110107, end: 20110112
  16. JANUVIA [Suspect]
     Route: 048
     Dates: start: 20110107, end: 20110304
  17. AMLODIPINE [Concomitant]
     Route: 065
     Dates: start: 20101126, end: 20110121
  18. JANUVIA [Suspect]
     Route: 048
     Dates: start: 20110311

REACTIONS (1)
  - MYALGIA [None]
